FAERS Safety Report 9897552 (Version 2)
Quarter: 2014Q2

REPORT INFORMATION
  Report Type: Report from Study
  Country: JP (occurrence: JP)
  Receive Date: 20140214
  Receipt Date: 20140410
  Transmission Date: 20141212
  Serious: Yes (Hospitalization)
  Sender: FDA-Public Use
  Company Number: JP-ELI_LILLY_AND_COMPANY-JP201402001102

PATIENT
  Age: 63 Year
  Sex: Male

DRUGS (5)
  1. PEMETREXED [Suspect]
     Indication: LUNG ADENOCARCINOMA STAGE III
     Dosage: 500 MG/M2, UNK
     Route: 042
     Dates: start: 20131211
  2. CISPLATIN [Suspect]
     Indication: LUNG ADENOCARCINOMA STAGE III
     Dosage: 75 MG/M2, UNK
     Route: 065
     Dates: start: 20131211
  3. FOLIC ACID [Concomitant]
     Indication: PROPHYLAXIS
     Route: 065
  4. VITAMIN B12 [Concomitant]
     Indication: PROPHYLAXIS
     Route: 065
  5. INSULIN [Concomitant]
     Indication: TYPE 2 DIABETES MELLITUS
     Route: 058

REACTIONS (2)
  - Pleural effusion [Not Recovered/Not Resolved]
  - Hypoglycaemia [Recovered/Resolved]
